FAERS Safety Report 8145721-2 (Version None)
Quarter: 2012Q1

REPORT INFORMATION
  Report Type: 
  Country: None (occurrence: None)
  Receive Date: 20120217
  Receipt Date: 20120214
  Transmission Date: 20120608
  Serious: Yes (Other)
  Sender: FDA-Public Use
  Company Number: US-AMGEN-USASP2011009308

PATIENT
  Age: 79 Year
  Sex: Female
  Weight: 70.76 kg

DRUGS (9)
  1. HYDROCHLOROTHIAZIDE [Concomitant]
  2. OSCAL D                            /00944201/ [Concomitant]
  3. NIFEDIPINE [Concomitant]
  4. CLONIDINE [Concomitant]
  5. ZOCOR [Concomitant]
  6. GLIPIZIDE [Concomitant]
  7. LANTUS [Concomitant]
  8. HUMALOG PEN MIX [Concomitant]
  9. PROLIA [Suspect]
     Indication: OSTEOPOROSIS
     Dosage: 60 MG, Q6MO
     Route: 058
     Dates: start: 20100817, end: 20110927

REACTIONS (5)
  - INSOMNIA [None]
  - GOUT [None]
  - PAIN [None]
  - HYPERGLYCAEMIA [None]
  - BLOOD PRESSURE SYSTOLIC INCREASED [None]
